APPROVED DRUG PRODUCT: CISPLATIN
Active Ingredient: CISPLATIN
Strength: 10MG/VIAL
Dosage Form/Route: INJECTABLE;INJECTION
Application: A074713 | Product #001
Applicant: BEDFORD LABORATORIES DIV BEN VENUE LABORATORIES INC
Approved: Nov 14, 2000 | RLD: No | RS: No | Type: DISCN